FAERS Safety Report 20141068 (Version 1)
Quarter: 2021Q4

REPORT INFORMATION
  Report Type: Spontaneous
  Country: US (occurrence: None)
  Receive Date: 20211201
  Receipt Date: 20211201
  Transmission Date: 20220303
  Serious: No
  Sender: FDA-Public Use
  Company Number: None

PATIENT

DRUGS (4)
  1. VYONDYS 53 [Suspect]
     Active Substance: GOLODIRSEN
     Route: 042
  2. EXONDYS 51 [Suspect]
     Active Substance: ETEPLIRSEN
     Route: 042
  3. AMONDYS 45 [Suspect]
     Active Substance: CASIMERSEN
     Route: 042
  4. EXONDYS 51 [Suspect]
     Active Substance: ETEPLIRSEN
     Route: 042

REACTIONS (5)
  - Product appearance confusion [None]
  - Product packaging confusion [None]
  - Product name confusion [None]
  - Product prescribing error [None]
  - Intercepted product prescribing error [None]
